FAERS Safety Report 4286040-4 (Version None)
Quarter: 2004Q1

REPORT INFORMATION
  Report Type: 
  Country: None (occurrence: None)
  Receive Date: 20040203
  Receipt Date: 20040121
  Transmission Date: 20041129
  Serious: Yes (Hospitalization, Other)
  Sender: FDA-Public Use
  Company Number: 2004004406

PATIENT
  Age: 44 Year
  Sex: Male
  Weight: 74.8435 kg

DRUGS (3)
  1. NEURONTIN [Suspect]
     Indication: NEUROPATHIC PAIN
     Dosage: ORAL
     Route: 048
     Dates: start: 20030701
  2. LIPITOR [Concomitant]
  3. MULTIVITAMINS (ERGOCALCIFEROL, ASCORBIC ACIDE, FOLIC ACID, THIAMINE HY [Concomitant]

REACTIONS (4)
  - ARTERIOSPASM CORONARY [None]
  - CHEST DISCOMFORT [None]
  - LABORATORY TEST ABNORMAL [None]
  - PALLOR [None]
